FAERS Safety Report 8757793 (Version 1)
Quarter: 2012Q4

REPORT INFORMATION
  Report Type: 
  Country: CU (occurrence: CU)
  Receive Date: 20120828
  Receipt Date: 20120828
  Transmission Date: 20130627
  Serious: Yes (Death)
  Sender: FDA-Public Use
  Company Number: CU-ROCHE-1107715

PATIENT
  Age: 1 Month
  Sex: Female

DRUGS (1)
  1. ROCEPHIN [Suspect]
     Indication: DIARRHOEA INFECTIOUS
     Route: 042

REACTIONS (1)
  - Anaphylactic shock [Fatal]
